FAERS Safety Report 6153551-6 (Version None)
Quarter: 2009Q2

REPORT INFORMATION
  Report Type: 
  Country: None (occurrence: None)
  Receive Date: 20090413
  Receipt Date: 20090401
  Transmission Date: 20091009
  Serious: No
  Sender: FDA-Public Use
  Company Number: US-ABBOTT-09P-163-0565904-00

PATIENT
  Sex: Male
  Weight: 5.9 kg

DRUGS (5)
  1. SYNAGIS [Suspect]
     Indication: DRUG USE FOR UNKNOWN INDICATION
     Route: 030
     Dates: start: 20081101, end: 20081101
  2. SYNAGIS [Suspect]
     Route: 030
     Dates: start: 20081201, end: 20081201
  3. SYNAGIS [Suspect]
     Route: 030
     Dates: start: 20090101, end: 20090101
  4. SYNAGIS [Suspect]
     Route: 030
     Dates: start: 20090201, end: 20090201
  5. REGLAN [Concomitant]
     Indication: DRUG USE FOR UNKNOWN INDICATION

REACTIONS (1)
  - RESPIRATORY SYNCYTIAL VIRUS INFECTION [None]
